FAERS Safety Report 7308589-X (Version None)
Quarter: 2011Q1

REPORT INFORMATION
  Report Type: 
  Country: None (occurrence: None)
  Receive Date: 20110223
  Receipt Date: 20110214
  Transmission Date: 20110831
  Serious: Yes (Hospitalization)
  Sender: FDA-Public Use
  Company Number: FR-PFIZER INC-2011038210

PATIENT
  Age: 85 Year
  Sex: Male

DRUGS (10)
  1. ASPIRIN [Concomitant]
     Dosage: 160 MG, IN THE MORNING
  2. TRANXENE [Suspect]
     Dosage: UNK
     Route: 042
     Dates: start: 20110107, end: 20110113
  3. TAHOR [Concomitant]
     Dosage: 40 MG, AT NIGHT
  4. ATARAX [Suspect]
     Dosage: 50 MG, UNK
     Route: 048
     Dates: start: 20110107, end: 20110113
  5. TIAPRIDAL [Suspect]
     Dosage: 50 MG, 2X/DAY
     Route: 048
     Dates: start: 20110110, end: 20110113
  6. NEXIUM [Concomitant]
     Dosage: 20 MG, AT NIGHT
  7. KREDEX [Concomitant]
     Dosage: 3.125 MG, 2X/DAY
  8. TRIATEC [Concomitant]
     Dosage: 1.25 MG, 2X/DAY
  9. PLAVIX [Concomitant]
     Dosage: 75 MG, IN THE MORNING
  10. OMACOR [Concomitant]
     Dosage: 1 DF, 1X/DAY

REACTIONS (3)
  - AGITATION [None]
  - AGGRESSION [None]
  - HALLUCINATION, VISUAL [None]
